FAERS Safety Report 14573565 (Version 1)
Quarter: 2018Q1

REPORT INFORMATION
  Report Type: Spontaneous
  Country: US (occurrence: US)
  Receive Date: 20180224
  Receipt Date: 20180224
  Transmission Date: 20180509
  Serious: Yes (Disabling)
  Sender: FDA-Public Use
  Company Number: None

PATIENT
  Sex: Female
  Weight: 55.8 kg

DRUGS (3)
  1. CELEBREX [Suspect]
     Active Substance: CELECOXIB
     Indication: BACK INJURY
     Dates: start: 20140901, end: 20160101
  2. CELEBREX [Suspect]
     Active Substance: CELECOXIB
     Indication: NECK INJURY
     Dates: start: 20140901, end: 20160101
  3. MULTIVITAMIN FOR WOMEN [Concomitant]

REACTIONS (1)
  - Blood glucose increased [None]

NARRATIVE: CASE EVENT DATE: 20160101
